FAERS Safety Report 9031450 (Version 1)
Quarter: 2013Q1

REPORT INFORMATION
  Report Type: Spontaneous
  Country: SE (occurrence: SE)
  Receive Date: 20130124
  Receipt Date: 20130124
  Transmission Date: 20140127
  Serious: Yes (Hospitalization)
  Sender: FDA-Public Use
  Company Number: SE-ROCHE-1181990

PATIENT
  Age: 87 Year
  Sex: Female

DRUGS (18)
  1. LUCENTIS [Suspect]
     Indication: PRODUCT USED FOR UNKNOWN INDICATION
     Route: 050
     Dates: start: 20120511
  2. LUCENTIS [Suspect]
     Route: 050
     Dates: start: 20120608, end: 20120706
  3. METOJECT [Concomitant]
  4. CALCICHEW D3 [Concomitant]
  5. MOVICOL [Concomitant]
  6. LEVAXIN [Concomitant]
  7. OMEPRAZOLE [Concomitant]
  8. AMLODIPINE [Concomitant]
  9. FRAGMIN [Concomitant]
  10. FOLACIN [Concomitant]
  11. ASANT [Concomitant]
     Dosage: ASASANTIN
     Route: 065
  12. ALVEDON [Concomitant]
  13. PREDNISOLON [Concomitant]
  14. BETNOVAT [Concomitant]
  15. TAVEGYL [Concomitant]
  16. DOLCONTIN [Concomitant]
  17. ISOSORBID (ISOSORBIDE MONONITRATE) [Concomitant]
  18. NOVOMIX 30 [Concomitant]

REACTIONS (2)
  - Pemphigoid [Not Recovered/Not Resolved]
  - Cerebral infarction [Not Recovered/Not Resolved]
